FAERS Safety Report 18360982 (Version 1)
Quarter: 2020Q4

REPORT INFORMATION
  Report Type: Spontaneous
  Country: AU (occurrence: AU)
  Receive Date: 20201008
  Receipt Date: 20201008
  Transmission Date: 20210114
  Serious: Yes (Other)
  Sender: FDA-Public Use
  Company Number: NVSC2020AU270489

PATIENT
  Sex: Male

DRUGS (1)
  1. GLIVEC [Suspect]
     Active Substance: IMATINIB MESYLATE
     Indication: GASTROINTESTINAL STROMAL TUMOUR
     Dosage: UNK
     Route: 065

REACTIONS (7)
  - Muscle spasms [Unknown]
  - Malignant melanoma [Unknown]
  - Fluid retention [Unknown]
  - Second primary malignancy [Unknown]
  - Abdominal discomfort [Unknown]
  - Joint swelling [Unknown]
  - Periorbital swelling [Unknown]
